FAERS Safety Report 8795042 (Version 2)
Quarter: 2015Q1

REPORT INFORMATION
  Report Type: Report from Study
  Country: US (occurrence: US)
  Receive Date: 20120917
  Receipt Date: 20150304
  Transmission Date: 20150721
  Serious: Yes (Death)
  Sender: FDA-Public Use
  Company Number: US-ROCHE-1098246

PATIENT
  Sex: Male
  Weight: 120 kg

DRUGS (17)
  1. AVASTIN [Suspect]
     Active Substance: BEVACIZUMAB
     Indication: MALIGNANT URINARY TRACT NEOPLASM
     Dosage: ON 16/JAN/2006, 30/JAN/2006, 13/FEB/2006, 27/FEB/2006, 06/MAR/ , 13/MAR/2006, 20/MAR/2006, 27/MAR/20
     Route: 042
  2. LASIX [Concomitant]
     Active Substance: FUROSEMIDE
  3. ASPIRIN. [Concomitant]
     Active Substance: ASPIRIN
  4. ALOXI [Concomitant]
     Active Substance: PALONOSETRON HYDROCHLORIDE
     Route: 042
  5. TORISEL [Concomitant]
     Active Substance: TEMSIROLIMUS
     Route: 065
     Dates: end: 20071015
  6. DECADRON [Concomitant]
     Active Substance: DEXAMETHASONE
     Route: 065
  7. COUMADIN [Concomitant]
     Active Substance: WARFARIN SODIUM
  8. DIAVAN (UNK INGREDIENTS) [Concomitant]
  9. PERCOCET [Concomitant]
     Active Substance: ACETAMINOPHEN\OXYCODONE HYDROCHLORIDE
  10. ALLOPURINOL. [Concomitant]
     Active Substance: ALLOPURINOL
     Route: 065
  11. AVASTIN [Suspect]
     Active Substance: BEVACIZUMAB
     Indication: RENAL CANCER
     Dosage: SOLUTION STRENGTH 100?ON 04/APR/2005 , 18/APR/2005, 03/MAY/2005, 10/MAY/2005, 16/MAY/2005, 31/MAY/20
     Route: 042
     Dates: start: 200504
  12. AVASTIN [Suspect]
     Active Substance: BEVACIZUMAB
     Indication: METASTASES TO LUNG
  13. VINBLASTINE [Concomitant]
     Active Substance: VINBLASTINE
  14. HYDROCHLOROTHIAZIDE. [Concomitant]
     Active Substance: HYDROCHLOROTHIAZIDE
  15. 5-FLUOROURACIL [Concomitant]
     Active Substance: FLUOROURACIL
  16. ATIVAN [Concomitant]
     Active Substance: LORAZEPAM
     Route: 042
  17. BENADRYL [Concomitant]
     Active Substance: DIPHENHYDRAMINE HYDROCHLORIDE
     Route: 042

REACTIONS (2)
  - Platelet count decreased [Unknown]
  - Death [Fatal]
